FAERS Safety Report 22900230 (Version 3)
Quarter: 2025Q1

REPORT INFORMATION
  Report Type: Report from Study
  Country: AE (occurrence: AE)
  Receive Date: 20230904
  Receipt Date: 20250320
  Transmission Date: 20250409
  Serious: Yes (Other)
  Sender: ROCHE
  Company Number: AE-ROCHE-3268991

PATIENT
  Age: 40 Year
  Sex: Male

DRUGS (3)
  1. OCRELIZUMAB [Suspect]
     Active Substance: OCRELIZUMAB
     Indication: Relapsing multiple sclerosis
     Route: 042
     Dates: start: 20190501
  2. BACLOFEN [Concomitant]
     Active Substance: BACLOFEN
  3. DALFAMPRIDINE [Concomitant]
     Active Substance: DALFAMPRIDINE

REACTIONS (12)
  - Optic atrophy [Unknown]
  - Migraine [Unknown]
  - Dysmetria [Unknown]
  - Pupillary reflex impaired [Unknown]
  - Muscle spasticity [Unknown]
  - Tandem gait test abnormal [Unknown]
  - Gait spastic [Unknown]
  - Ataxia [Unknown]
  - Balance disorder [Unknown]
  - Gait disturbance [Unknown]
  - Migraine [Unknown]
  - Paraparesis [Unknown]

NARRATIVE: CASE EVENT DATE: 20240718
